FAERS Safety Report 8888327 (Version 1)
Quarter: 2012Q4

REPORT INFORMATION
  Report Type: 
  Country: US (occurrence: US)
  Receive Date: 20121106
  Receipt Date: 20121106
  Transmission Date: 20130627
  Serious: No
  Sender: FDA-Public Use
  Company Number: US-PFIZER INC-2012276041

PATIENT
  Sex: Female

DRUGS (1)
  1. LYRICA [Suspect]
     Indication: PAIN IN ARM
     Dosage: UNK

REACTIONS (3)
  - Off label use [Unknown]
  - Weight increased [Unknown]
  - Paraesthesia [Unknown]
